FAERS Safety Report 10911971 (Version 1)
Quarter: 2015Q1

REPORT INFORMATION
  Report Type: Spontaneous
  Country: US (occurrence: None)
  Receive Date: 20150310
  Receipt Date: 20150310
  Transmission Date: 20150721
  Serious: Yes (Life-Threatening, Hospitalization, Disabling)
  Sender: FDA-Public Use
  Company Number: None

PATIENT
  Age: 55 Year
  Sex: Male
  Weight: 86.18 kg

DRUGS (1)
  1. CIPROFLOXACIN. [Suspect]
     Active Substance: CIPROFLOXACIN
     Indication: PROSTATITIS
     Dosage: 20 TAKEN BY MOUTH
     Route: 048

REACTIONS (16)
  - Constipation [None]
  - Tremor [None]
  - Erectile dysfunction [None]
  - Dyskinesia [None]
  - Cardiac failure [None]
  - Tachycardia [None]
  - Hyperacusis [None]
  - Insomnia [None]
  - Panic attack [None]
  - Nervous system disorder [None]
  - Diarrhoea [None]
  - Exercise tolerance decreased [None]
  - Tendon disorder [None]
  - Anxiety [None]
  - Myalgia [None]
  - Psychotic disorder [None]

NARRATIVE: CASE EVENT DATE: 20150301
